FAERS Safety Report 9786290 (Version 1)
Quarter: 2013Q4

REPORT INFORMATION
  Report Type: Spontaneous
  Country: GB (occurrence: None)
  Receive Date: 20131224
  Receipt Date: 20131224
  Transmission Date: 20140711
  Serious: Yes (Other)
  Sender: FDA-Public Use
  Company Number: 2013360752

PATIENT
  Age: 8 Decade
  Sex: Male

DRUGS (1)
  1. FRAGMIN [Suspect]
     Indication: PROPHYLAXIS

REACTIONS (2)
  - Renal impairment [None]
  - Haematoma [None]
